FAERS Safety Report 5069064-9 (Version None)
Quarter: 2006Q3

REPORT INFORMATION
  Report Type: 
  Country: None (occurrence: None)
  Receive Date: 20060801
  Receipt Date: 20060801
  Transmission Date: 20061208
  Serious: Yes (Death)
  Sender: FDA-Public Use
  Company Number: None

PATIENT
  Age: 25 Year
  Sex: Male
  Weight: 63.5036 kg

DRUGS (5)
  1. TYLENOL [Suspect]
     Indication: COUGH
     Dosage: PRSCRIBED BY NURSE PO
     Route: 048
     Dates: start: 20050115, end: 20050118
  2. TYLENOL [Suspect]
     Indication: HEADACHE
     Dosage: PRSCRIBED BY NURSE PO
     Route: 048
     Dates: start: 20050115, end: 20050118
  3. TYLENOL [Suspect]
     Indication: PHARYNGOLARYNGEAL PAIN
     Dosage: PRSCRIBED BY NURSE PO
     Route: 048
     Dates: start: 20050115, end: 20050118
  4. SUDAFED 12 HOUR [Suspect]
  5. ROBITUSSIN [Suspect]

REACTIONS (1)
  - HEPATOCELLULAR DAMAGE [None]
